FAERS Safety Report 5369888-4 (Version None)
Quarter: 2007Q2

REPORT INFORMATION
  Report Type: 
  Country: None (occurrence: None)
  Receive Date: 20070621
  Receipt Date: 20070611
  Transmission Date: 20071010
  Serious: Yes (Death, Life-Threatening, Hospitalization)
  Sender: FDA-Public Use
  Company Number: 430003L07ISR

PATIENT
  Age: 43 Year
  Sex: Male

DRUGS (3)
  1. MITOXANTRONE HCL [Suspect]
     Indication: ACUTE MYELOID LEUKAEMIA
  2. ARSENIC TRIOXIDE [Suspect]
     Indication: ACUTE MYELOID LEUKAEMIA
     Dosage: 10 MG, 1 IN 1 DAYS
  3. IDARUBICIN HCL [Suspect]
     Indication: ACUTE MYELOID LEUKAEMIA

REACTIONS (4)
  - ELECTROCARDIOGRAM QT CORRECTED INTERVAL PROLONGED [None]
  - HAEMODYNAMIC INSTABILITY [None]
  - RESPIRATORY DISTRESS [None]
  - TORSADE DE POINTES [None]
